FAERS Safety Report 9019446 (Version 1)
Quarter: 2013Q1

REPORT INFORMATION
  Report Type: Spontaneous
  Country: US (occurrence: US)
  Receive Date: 20130118
  Receipt Date: 20130118
  Transmission Date: 20140127
  Serious: No
  Sender: FDA-Public Use
  Company Number: US-BAYER-2013-006520

PATIENT
  Sex: Female

DRUGS (2)
  1. ALEVE CAPLET/TABLET,MIDOL EXTENDED RELIEF CAPLET [Suspect]
  2. THERMACARE HEATWRAPS [Concomitant]
     Dosage: UNK

REACTIONS (1)
  - Drug ineffective [None]
